FAERS Safety Report 7993961-5 (Version None)
Quarter: 2011Q4

REPORT INFORMATION
  Report Type: 
  Country: None (occurrence: None)
  Receive Date: 20111220
  Receipt Date: 20111208
  Transmission Date: 20120403
  Serious: Yes (Hospitalization)
  Sender: FDA-Public Use
  Company Number: TW-BAYER-2011-117524

PATIENT
  Age: 18 Year
  Sex: Female
  Weight: 48.98 kg

DRUGS (1)
  1. YASMIN [Suspect]
     Dosage: UNK
     Dates: start: 20100601, end: 20101101

REACTIONS (5)
  - EYELID OEDEMA [None]
  - OEDEMA MOUTH [None]
  - URTICARIA [None]
  - LARYNGEAL OEDEMA [None]
  - ABDOMINAL PAIN UPPER [None]
